FAERS Safety Report 8053146-3 (Version None)
Quarter: 2012Q1

REPORT INFORMATION
  Report Type: 
  Country: None (occurrence: None)
  Receive Date: 20120118
  Receipt Date: 20120116
  Transmission Date: 20120608
  Serious: Yes (Other)
  Sender: FDA-Public Use
  Company Number: US-PFIZER INC-2012012361

PATIENT
  Sex: Female
  Weight: 50.7 kg

DRUGS (4)
  1. SINGULAIR [Concomitant]
     Indication: ASTHMA
     Dosage: UNK
  2. ROBITUSSIN PEAK COLD COUGH PLUS CHEST CONGESTION DM [Suspect]
     Indication: COUGH
     Dosage: UNK, AS NEEDED
     Route: 048
     Dates: start: 20120101, end: 20120114
  3. EVISTA [Concomitant]
     Dosage: UNK
  4. ACTONEL [Concomitant]
     Dosage: UNK

REACTIONS (2)
  - ABDOMINAL DISCOMFORT [None]
  - CHOKING [None]
